FAERS Safety Report 25260442 (Version 1)
Quarter: 2025Q2

REPORT INFORMATION
  Report Type: Spontaneous
  Country: US (occurrence: US)
  Receive Date: 20250501
  Receipt Date: 20250501
  Transmission Date: 20250716
  Serious: No
  Sender: MYLAN
  Company Number: US-MYLANLABS-2025M1035167

PATIENT
  Sex: Female

DRUGS (4)
  1. TYRVAYA [Suspect]
     Active Substance: VARENICLINE TARTRATE
     Indication: Dry eye
  2. TYRVAYA [Suspect]
     Active Substance: VARENICLINE TARTRATE
     Route: 045
  3. TYRVAYA [Suspect]
     Active Substance: VARENICLINE TARTRATE
     Route: 045
  4. TYRVAYA [Suspect]
     Active Substance: VARENICLINE TARTRATE

REACTIONS (2)
  - Instillation site irritation [Unknown]
  - Lacrimation increased [Unknown]
